FAERS Safety Report 9607038 (Version 1)
Quarter: 2013Q4

REPORT INFORMATION
  Report Type: Report from Study
  Country: ES (occurrence: ES)
  Receive Date: 20131009
  Receipt Date: 20131009
  Transmission Date: 20140711
  Serious: Yes (Hospitalization)
  Sender: FDA-Public Use
  Company Number: ES-ASTRAZENECA-2013SE73853

PATIENT
  Age: 81 Year
  Sex: Female

DRUGS (1)
  1. QUETIAPINE [Suspect]
     Indication: DEMENTIA
     Route: 048

REACTIONS (3)
  - Thalamic infarction [Unknown]
  - Catatonia [Recovering/Resolving]
  - Off label use [Unknown]
